FAERS Safety Report 12101715 (Version 1)
Quarter: 2016Q1

REPORT INFORMATION
  Report Type: Spontaneous
  Country: SE (occurrence: SE)
  Receive Date: 20160222
  Receipt Date: 20160222
  Transmission Date: 20160526
  Serious: Yes (Hospitalization, Other)
  Sender: FDA-Public Use
  Company Number: SE-009507513-1510SWE000925

PATIENT
  Age: 37 Year
  Sex: Female

DRUGS (1)
  1. NEXPLANON [Suspect]
     Active Substance: ETONOGESTREL
     Indication: CONTRACEPTION
     Dosage: UNK
     Route: 059
     Dates: start: 20140916

REACTIONS (8)
  - Pregnancy with implant contraceptive [Recovered/Resolved]
  - Complication associated with device [Unknown]
  - Complication of delivery [Unknown]
  - Wound infection [Unknown]
  - Anaemia [Unknown]
  - Gestational diabetes [Unknown]
  - Endometritis [Unknown]
  - Unintended pregnancy [Recovered/Resolved]

NARRATIVE: CASE EVENT DATE: 20140916
